FAERS Safety Report 8897787 (Version 1)
Quarter: 2012Q4

REPORT INFORMATION
  Report Type: 
  Country: US (occurrence: US)
  Receive Date: 20121108
  Receipt Date: 20121108
  Transmission Date: 20130627
  Serious: No
  Sender: FDA-Public Use
  Company Number: US-AMGEN-USASP2012029840

PATIENT
  Age: 64 Year
  Sex: Male
  Weight: 36.28 kg

DRUGS (6)
  1. ENBREL [Suspect]
     Indication: RHEUMATOID ARTHRITIS
     Dosage: 50 mg, qwk
     Route: 058
  2. ZOLOFT [Concomitant]
     Dosage: 50 mg, UNK
     Route: 048
  3. METHOTREXATE [Concomitant]
     Dosage: 2.5 mg, UNK
     Route: 048
  4. LISINOPRIL [Concomitant]
     Dosage: 10 mg, UNK
     Route: 048
  5. ACTONEL [Concomitant]
     Dosage: 75 mg, UNK
     Route: 048
  6. MULTIVIT [Concomitant]
     Dosage: UNK
     Route: 048

REACTIONS (1)
  - Staphylococcal infection [Recovered/Resolved]
